FAERS Safety Report 5272058-1 (Version None)
Quarter: 2007Q1

REPORT INFORMATION
  Report Type: 
  Country: None (occurrence: None)
  Receive Date: 20061214
  Receipt Date: 20060316
  Transmission Date: 20070707
  Serious: Yes (Other)
  Sender: FDA-Public Use
  Company Number: 2006038255

PATIENT
  Age: 37 Year
  Sex: Male

DRUGS (4)
  1. BEXTRA [Suspect]
     Indication: ILL-DEFINED DISORDER
     Dosage: 30 MG (10 MG,3 IN 1 D)
     Dates: start: 20050901, end: 20060315
  2. AVELOX [Suspect]
     Indication: ILL-DEFINED DISORDER
     Dates: start: 20050901, end: 20060315
  3. VICOPROFEN [Suspect]
     Indication: MIGRAINE
     Dates: start: 20051214, end: 20060315
  4. ALBUTEROL [Concomitant]

REACTIONS (10)
  - CHEST PAIN [None]
  - CONFUSIONAL STATE [None]
  - DIARRHOEA [None]
  - DIZZINESS [None]
  - DYSPNOEA [None]
  - MEMORY IMPAIRMENT [None]
  - MUSCLE SPASMS [None]
  - NAUSEA [None]
  - RASH [None]
  - RECTAL HAEMORRHAGE [None]
